FAERS Safety Report 9314998 (Version 1)
Quarter: 2013Q2

REPORT INFORMATION
  Report Type: Spontaneous
  Country: US (occurrence: US)
  Receive Date: 20130529
  Receipt Date: 20130529
  Transmission Date: 20140414
  Serious: No
  Sender: FDA-Public Use
  Company Number: US-PFIZER INC-2013161111

PATIENT
  Sex: Male

DRUGS (2)
  1. ADVIL [Suspect]
     Dosage: UNK
     Route: 048
  2. ADVIL [Suspect]
     Dosage: FOUR 200MG TABLETS TOGETHER
     Route: 048
     Dates: start: 20130525

REACTIONS (2)
  - Incorrect dose administered [Unknown]
  - Hangover [Unknown]
